FAERS Safety Report 7434515-9 (Version None)
Quarter: 2011Q2

REPORT INFORMATION
  Report Type: 
  Country: None (occurrence: None)
  Receive Date: 20110425
  Receipt Date: 20110421
  Transmission Date: 20111010
  Serious: Yes (Other)
  Sender: FDA-Public Use
  Company Number: JP-AMGEN-JPNSP2011021071

PATIENT
  Age: 63 Year
  Sex: Male

DRUGS (6)
  1. AZULFIDINE [Concomitant]
     Dosage: 2 DF, 2X/DAY
  2. ENBREL [Suspect]
     Indication: RHEUMATOID ARTHRITIS
     Dosage: 25 MG, 2X/WEEK
     Route: 058
     Dates: start: 20110404
  3. RIMATIL [Concomitant]
     Dosage: 3 DF, 3X/DAY
  4. PREDONINE                          /00016201/ [Concomitant]
     Dosage: 5 MG, 1X/DAY
  5. RHEUMATREX [Concomitant]
     Dosage: 2 MG, 4 TIMES A WEEK
  6. ISONIAZID [Concomitant]
     Dosage: 3 DF, 3X/DAY

REACTIONS (1)
  - HYPERTENSION [None]
